FAERS Safety Report 6922011-4 (Version None)
Quarter: 2010Q3

REPORT INFORMATION
  Report Type: 
  Country: None (occurrence: None)
  Receive Date: 20100806
  Receipt Date: 20090626
  Transmission Date: 20110219
  Serious: No
  Sender: FDA-Public Use
  Company Number: 2009-00296

PATIENT
  Sex: Female
  Weight: 52.6173 kg

DRUGS (11)
  1. ZICAM COLD REMEDY GEL SWABS [Suspect]
     Dosage: 5-10 SWABS, 2 DIFF COLDS
     Dates: start: 20090101, end: 20090501
  2. PARNATE [Concomitant]
  3. ESKALITH ER [Concomitant]
  4. LAMICTAL [Concomitant]
  5. PRILOSEC [Concomitant]
  6. ALIGN [Concomitant]
  7. LACTAID [Concomitant]
  8. ENTEL [Concomitant]
  9. FIORICET [Concomitant]
  10. LIDODERM [Concomitant]
  11. XIFAXAN [Concomitant]

REACTIONS (1)
  - AGEUSIA [None]
